APPROVED DRUG PRODUCT: ACETAMINOPHEN
Active Ingredient: ACETAMINOPHEN
Strength: 1GM/100ML (10MG/ML)
Dosage Form/Route: SOLUTION;INTRAVENOUS
Application: A216467 | Product #001
Applicant: ZYDUS PHARMACEUTICALS USA INC
Approved: Oct 25, 2022 | RLD: No | RS: No | Type: DISCN